FAERS Safety Report 7640907-5 (Version None)
Quarter: 2011Q3

REPORT INFORMATION
  Report Type: 
  Country: None (occurrence: None)
  Receive Date: 20110728
  Receipt Date: 20110728
  Transmission Date: 20111222
  Serious: Yes (Death, Hospitalization)
  Sender: FDA-Public Use
  Company Number: None

PATIENT
  Age: 75 Year
  Sex: Male
  Weight: 98.9 kg

DRUGS (2)
  1. CYTARABINE [Concomitant]
     Dosage: 20  MG/ M2
     Route: 058
     Dates: start: 20110601, end: 20110614
  2. CLOFARABINE [Suspect]
     Indication: ACUTE MYELOID LEUKAEMIA
     Dosage: 20 MG
     Route: 048
     Dates: start: 20110601, end: 20110605

REACTIONS (3)
  - ACUTE MYELOID LEUKAEMIA [None]
  - STAPHYLOCOCCAL INFECTION [None]
  - OSTEOMYELITIS [None]
